FAERS Safety Report 10623264 (Version 2)
Quarter: 2014Q4

REPORT INFORMATION
  Report Type: Spontaneous
  Country: SE (occurrence: SE)
  Receive Date: 20141203
  Receipt Date: 20141203
  Transmission Date: 20150529
  Serious: Yes (Hospitalization, Other)
  Sender: FDA-Public Use
  Company Number: SE-GLAXOSMITHKLINE-B0969302A

PATIENT
  Age: 24 Year
  Sex: Male

DRUGS (1)
  1. VOXRA [Suspect]
     Active Substance: BUPROPION HYDROCHLORIDE
     Indication: PRODUCT USED FOR UNKNOWN INDICATION
     Dosage: UNK
     Route: 065
     Dates: start: 20140101

REACTIONS (5)
  - Poisoning [Unknown]
  - Intentional self-injury [Unknown]
  - Sinus tachycardia [Unknown]
  - Blood lactic acid increased [Unknown]
  - Hallucination [Unknown]

NARRATIVE: CASE EVENT DATE: 20140101
